FAERS Safety Report 16250545 (Version 2)
Quarter: 2019Q2

REPORT INFORMATION
  Report Type: Spontaneous
  Country: US (occurrence: US)
  Receive Date: 20190429
  Receipt Date: 20190627
  Transmission Date: 20190711
  Serious: No
  Sender: FDA-Public Use
  Company Number: US-PFIZER INC-2019172720

PATIENT
  Age: 71 Year
  Sex: Male
  Weight: 52.15 kg

DRUGS (2)
  1. CHANTIX [Suspect]
     Active Substance: VARENICLINE TARTRATE
     Dosage: 1 MG, 2X/DAY  (ONE TABLET BY MOUTH IN THE MORNING AND AT NIGHT)
     Route: 048
     Dates: start: 201904
  2. CHANTIX [Suspect]
     Active Substance: VARENICLINE TARTRATE
     Indication: SMOKING CESSATION THERAPY
     Dosage: UNK UNK, 1X/DAY (THE FIRST 4 OR 7 DAYS, WHEN ONE A DAY WAS TAKEN)
     Route: 048
     Dates: start: 201904, end: 201904

REACTIONS (2)
  - Abdominal discomfort [Unknown]
  - Nausea [Not Recovered/Not Resolved]

NARRATIVE: CASE EVENT DATE: 2019
